FAERS Safety Report 16540874 (Version 1)
Quarter: 2019Q3

REPORT INFORMATION
  Report Type: Spontaneous
  Country: US (occurrence: US)
  Receive Date: 20190707
  Receipt Date: 20190707
  Transmission Date: 20191004
  Serious: Yes (Other)
  Sender: FDA-Public Use
  Company Number: None

PATIENT
  Age: 37 Year
  Sex: Female

DRUGS (6)
  1. ALLEGRA [Concomitant]
     Active Substance: FEXOFENADINE HYDROCHLORIDE
  2. SINGULAIR [Concomitant]
     Active Substance: MONTELUKAST SODIUM
  3. ALBUTEROL. [Concomitant]
     Active Substance: ALBUTEROL
  4. CLARITIN [Concomitant]
     Active Substance: LORATADINE
  5. FLONASE [Concomitant]
     Active Substance: FLUTICASONE PROPIONATE
  6. HUMIRA [Suspect]
     Active Substance: ADALIMUMAB
     Indication: CROHN^S DISEASE
     Dosage: ?          QUANTITY:1 INJECTION(S);OTHER FREQUENCY:EVERY OTHER WEEK;?
     Route: 058

REACTIONS (2)
  - Product formulation issue [None]
  - Injection site reaction [None]

NARRATIVE: CASE EVENT DATE: 20190707
